FAERS Safety Report 12429627 (Version 12)
Quarter: 2018Q1

REPORT INFORMATION
  Report Type: Report from Study
  Country: US (occurrence: US)
  Receive Date: 20160602
  Receipt Date: 20180103
  Transmission Date: 20180508
  Serious: Yes (Hospitalization)
  Sender: FDA-Public Use
  Company Number: US-EISAI MEDICAL RESEARCH-E7080-01261-CLI-US

PATIENT
  Age: 60 Year
  Sex: Female
  Weight: 84 kg

DRUGS (45)
  1. CICLOPIROX. [Concomitant]
     Active Substance: CICLOPIROX
  2. AMBIEN [Concomitant]
     Active Substance: ZOLPIDEM TARTRATE
  3. POTASSIUM CHLORIDE. [Concomitant]
     Active Substance: POTASSIUM CHLORIDE
  4. CATAPRES [Concomitant]
     Active Substance: CLONIDINE HYDROCHLORIDE
  5. CICLOPIROX. [Concomitant]
     Active Substance: CICLOPIROX
  6. REFRESH P.M. OINT [Concomitant]
  7. LOPRESSOR [Concomitant]
     Active Substance: METOPROLOL TARTRATE
  8. LISINOPRIL. [Concomitant]
     Active Substance: LISINOPRIL
  9. METFORMIN [Concomitant]
     Active Substance: METFORMIN HYDROCHLORIDE
  10. METOCLOPRAMIDE. [Concomitant]
     Active Substance: METOCLOPRAMIDE
  11. METOPROLOL. [Concomitant]
     Active Substance: METOPROLOL
  12. TRAMADOL. [Concomitant]
     Active Substance: TRAMADOL
  13. VITAMIN D3 [Concomitant]
     Active Substance: CHOLECALCIFEROL
  14. DRONEDARONE [Concomitant]
     Active Substance: DRONEDARONE
  15. ESOMEPRAZOLE [Concomitant]
     Active Substance: ESOMEPRAZOLE
  16. NYSTATIN. [Concomitant]
     Active Substance: NYSTATIN
  17. GLUCAGON. [Concomitant]
     Active Substance: GLUCAGON
  18. LENVATINIB [Suspect]
     Active Substance: LENVATINIB
     Route: 048
     Dates: start: 20130710, end: 20130721
  19. GRANISETRON [Concomitant]
     Active Substance: GRANISETRON
  20. ZOFRAN [Concomitant]
     Active Substance: ONDANSETRON HYDROCHLORIDE
  21. GABAPENTIN. [Concomitant]
     Active Substance: GABAPENTIN
  22. FAMOTIDINE. [Concomitant]
     Active Substance: FAMOTIDINE
  23. LENVATINIB [Suspect]
     Active Substance: LENVATINIB
     Route: 048
     Dates: start: 20130905, end: 20140114
  24. LENVATINIB [Suspect]
     Active Substance: LENVATINIB
     Route: 048
     Dates: start: 20140123
  25. HYDROCHLOROTHIAZIDE. [Concomitant]
     Active Substance: HYDROCHLOROTHIAZIDE
  26. LIPITOR [Concomitant]
     Active Substance: ATORVASTATIN CALCIUM
  27. CARMOL [Concomitant]
  28. CALCIUM CARBONATE- VIT D3 [Concomitant]
  29. DOCUSATE SODIUM. [Concomitant]
     Active Substance: DOCUSATE SODIUM
  30. LENVATINIB [Suspect]
     Active Substance: LENVATINIB
     Indication: FOLLICULAR THYROID CANCER
     Route: 048
     Dates: start: 20121204, end: 20130619
  31. LENVATINIB [Suspect]
     Active Substance: LENVATINIB
     Route: 048
  32. PRADAXA [Concomitant]
     Active Substance: DABIGATRAN ETEXILATE MESYLATE
  33. CLONIDINE. [Concomitant]
     Active Substance: CLONIDINE
  34. WOMENS MULTIVITAMIN PLUS TABS [Concomitant]
  35. MIRALAX [Concomitant]
     Active Substance: POLYETHYLENE GLYCOL 3350
  36. MOTRIN [Concomitant]
     Active Substance: IBUPROFEN
  37. REGLAN [Concomitant]
     Active Substance: METOCLOPRAMIDE HYDROCHLORIDE
  38. SYNTHROID [Concomitant]
     Active Substance: LEVOTHYROXINE SODIUM
  39. PRILOSEC [Concomitant]
     Active Substance: OMEPRAZOLE MAGNESIUM
  40. PREDNISOLONE ACETATE. [Concomitant]
     Active Substance: PREDNISOLONE ACETATE
  41. OMEPRAZOLE. [Concomitant]
     Active Substance: OMEPRAZOLE
  42. KLOR-CON [Concomitant]
     Active Substance: POTASSIUM CHLORIDE
  43. TOBRAMYCIN-DEXAMETHASONE [Concomitant]
     Active Substance: DEXAMETHASONE\TOBRAMYCIN
  44. DABIGATRAN EXTEXILATE [Concomitant]
  45. LEVOTHYROXINE. [Concomitant]
     Active Substance: LEVOTHYROXINE

REACTIONS (9)
  - Palpitations [Recovered/Resolved]
  - Upper respiratory tract infection [Recovered/Resolved]
  - Non-cardiac chest pain [Recovered/Resolved]
  - Hypertensive crisis [Recovered/Resolved]
  - Musculoskeletal chest pain [Recovered/Resolved]
  - Tachycardia [Recovered/Resolved]
  - Hypotension [Recovered/Resolved]
  - Dyspnoea [Recovered/Resolved]
  - Abdominal pain [Recovered/Resolved]

NARRATIVE: CASE EVENT DATE: 20130514
